FAERS Safety Report 9828455 (Version 1)
Quarter: 2014Q1

REPORT INFORMATION
  Report Type: Spontaneous
  Country: FR (occurrence: FR)
  Receive Date: 20140117
  Receipt Date: 20140117
  Transmission Date: 20141002
  Serious: Yes (Hospitalization, Other)
  Sender: FDA-Public Use
  Company Number: FR-ELI_LILLY_AND_COMPANY-FR201401001114

PATIENT
  Age: 58 Year
  Sex: Male

DRUGS (10)
  1. ALIMTA [Suspect]
     Indication: LUNG ADENOCARCINOMA
     Dosage: 970 MG, UNKNOWN
     Route: 042
     Dates: start: 20130529
  2. ALIMTA [Suspect]
     Dosage: 970 MG, UNKNOWN
     Route: 042
     Dates: start: 20130619
  3. ALIMTA [Suspect]
     Dosage: 960 MG, UNKNOWN
     Route: 042
     Dates: start: 20130711
  4. ALIMTA [Suspect]
     Dosage: 965 MG, UNKNOWN
     Route: 042
     Dates: start: 20130801
  5. CISPLATIN [Suspect]
     Indication: LUNG ADENOCARCINOMA
     Dosage: 145 MG, UNKNOWN
     Route: 042
     Dates: start: 20130529
  6. CISPLATIN [Suspect]
     Dosage: 145 MG, UNKNOWN
     Route: 042
     Dates: start: 20130619
  7. CISPLATIN [Suspect]
     Dosage: 115 MG, UNKNOWN
     Route: 042
     Dates: start: 20130711
  8. CISPLATIN [Suspect]
     Dosage: 116 MG, UNKNOWN
     Route: 042
     Dates: start: 20130801
  9. AVLOCARDYL [Concomitant]
     Indication: HYPERTENSION
     Dosage: UNK
     Dates: end: 201309
  10. CO-APROVEL [Concomitant]
     Indication: HYPERTENSION
     Dosage: UNK
     Dates: end: 201309

REACTIONS (4)
  - Renal failure [Not Recovered/Not Resolved]
  - Anaemia [Unknown]
  - Haematuria [Unknown]
  - Nausea [Unknown]
